FAERS Safety Report 11362268 (Version 1)
Quarter: 2015Q3

REPORT INFORMATION
  Report Type: Report from Study
  Country: US (occurrence: US)
  Receive Date: 20150810
  Receipt Date: 20150810
  Transmission Date: 20151125
  Serious: Yes (Death)
  Sender: FDA-Public Use
  Company Number: US-ASTELLAS-2015US021164

PATIENT
  Sex: Female

DRUGS (5)
  1. CYTOXAN [Concomitant]
     Active Substance: CYCLOPHOSPHAMIDE
     Indication: PRODUCT USED FOR UNKNOWN INDICATION
     Dosage: UNK UNK, UNKNOWN FREQ.
     Route: 065
  2. AVASTIN [Suspect]
     Active Substance: BEVACIZUMAB
     Indication: OVARIAN CANCER
     Route: 042
     Dates: start: 20050427
  3. ERLOTINIB [Suspect]
     Active Substance: ERLOTINIB
     Indication: MALIGNANT NEOPLASM OF UTERINE ADNEXA
  4. ERLOTINIB [Suspect]
     Active Substance: ERLOTINIB
     Indication: OVARIAN CANCER
     Route: 048
  5. AVASTIN [Suspect]
     Active Substance: BEVACIZUMAB
     Indication: MALIGNANT NEOPLASM OF UTERINE ADNEXA

REACTIONS (2)
  - Off label use [Unknown]
  - Death [Fatal]
